FAERS Safety Report 19175264 (Version 1)
Quarter: 2021Q2

REPORT INFORMATION
  Report Type: Report from Study
  Country: IT (occurrence: IT)
  Receive Date: 20210423
  Receipt Date: 20210423
  Transmission Date: 20210717
  Serious: Yes (Other)
  Sender: FDA-Public Use
  Company Number: IT-BRISTOL-MYERS SQUIBB COMPANY-BMS-2021-036871

PATIENT
  Age: 75 Year
  Sex: Male
  Weight: 80 kg

DRUGS (5)
  1. NIVOLUMAB [Suspect]
     Active Substance: NIVOLUMAB
     Indication: LUNG NEOPLASM MALIGNANT
     Dosage: 240 MILLIGRAM,1 CYCLICAL
     Route: 042
     Dates: start: 20200713, end: 20200825
  2. FRISIUM [Concomitant]
     Active Substance: CLOBAZAM
     Indication: ANXIETY
     Dosage: 10 MILLIGRAM,1 DAY
     Route: 048
  3. OMEPRAZEN [OMEPRAZOLE SODIUM] [Concomitant]
     Indication: PROPHYLAXIS
     Dosage: 20 MILLIGRAM,  1 DAY
     Route: 048
  4. OMNIC [Concomitant]
     Active Substance: TAMSULOSIN HYDROCHLORIDE
     Indication: BENIGN PROSTATIC HYPERPLASIA
     Dosage: 0.4 MILLIGRAM,1 DAY
     Route: 048
  5. TRIATEC COMP [Concomitant]
     Active Substance: HYDROCHLOROTHIAZIDE\RAMIPRIL
     Indication: HYPERTENSIVE HEART DISEASE
     Dosage: 2.5 MILLIGRAM, 1 DAY
     Route: 048
     Dates: start: 20200710

REACTIONS (1)
  - Diffuse alveolar damage [Recovering/Resolving]

NARRATIVE: CASE EVENT DATE: 20200911
